FAERS Safety Report 5253983-4 (Version None)
Quarter: 2007Q1

REPORT INFORMATION
  Report Type: 
  Country: None (occurrence: None)
  Receive Date: 20070228
  Receipt Date: 20070228
  Transmission Date: 20070707
  Serious: Yes (Hospitalization)
  Sender: FDA-Public Use
  Company Number: None

PATIENT
  Age: 76 Year
  Sex: Male
  Weight: 78 kg

DRUGS (9)
  1. BEVACIZUMAB [Suspect]
     Indication: TONSIL CANCER
     Dosage: 10 MG/KG Q 2 WEEKS IV
     Route: 042
     Dates: start: 20061220
  2. BEVACIZUMAB [Suspect]
     Indication: TONSIL CANCER
     Dosage: 10 MG/KG Q 2 WEEKS IV
     Route: 042
     Dates: start: 20070103
  3. BEVACIZUMAB [Suspect]
     Indication: TONSIL CANCER
     Dosage: 10 MG/KG Q 2 WEEKS IV
     Route: 042
     Dates: start: 20070117
  4. BEVACIZUMAB [Suspect]
     Indication: TONSIL CANCER
     Dosage: 10 MG/KG Q 2 WEEKS IV
     Route: 042
     Dates: start: 20070131
  5. BEVACIZUMAB [Suspect]
     Indication: TONSIL CANCER
     Dosage: 10 MG/KG Q 2 WEEKS IV
     Route: 042
     Dates: start: 20070214
  6. ERLOTINIB HYDROCHLORIDE [Suspect]
     Dosage: 100MG EVERY DAY ORALLY
     Route: 048
     Dates: start: 20061220
  7. ERLOTINIB HYDROCHLORIDE [Suspect]
     Dosage: 100MG EVERY DAY ORALLY
     Route: 048
     Dates: start: 20070216
  8. RADIATION THERAPY [Concomitant]
  9. CISPLATIN [Concomitant]

REACTIONS (3)
  - ASTHENIA [None]
  - DEHYDRATION [None]
  - VOMITING [None]
